FAERS Safety Report 11915354 (Version 2)
Quarter: 2016Q1

REPORT INFORMATION
  Report Type: Spontaneous
  Country: JP (occurrence: JP)
  Receive Date: 20160114
  Receipt Date: 20160323
  Transmission Date: 20160526
  Serious: Yes (Hospitalization)
  Sender: FDA-Public Use
  Company Number: JP-ROCHE-1694525

PATIENT
  Age: 64 Year
  Sex: Female
  Weight: 57 kg

DRUGS (9)
  1. GLUCOSE [Concomitant]
     Active Substance: DEXTROSE
     Indication: BREAST CANCER
     Route: 042
     Dates: start: 20150901, end: 20151201
  2. GASTER [Concomitant]
     Active Substance: FAMOTIDINE
     Indication: PROPHYLAXIS
     Route: 042
     Dates: start: 20150526, end: 20151201
  3. DECADRON [Concomitant]
     Active Substance: DEXAMETHASONE
     Indication: PROPHYLAXIS
     Route: 042
     Dates: start: 20150901, end: 20151201
  4. HERCEPTIN [Suspect]
     Active Substance: TRASTUZUMAB
     Indication: BREAST CANCER
     Dosage: 11 TIMES
     Route: 041
     Dates: start: 20150901, end: 20151201
  5. ONETAXOTERE [Concomitant]
     Active Substance: DOCETAXEL
     Indication: BREAST CANCER
     Dosage: DOSE INTERVAL UNCERTAINTY
     Route: 041
     Dates: start: 20150901, end: 20151201
  6. POLARAMINE [Concomitant]
     Active Substance: DEXCHLORPHENIRAMINE MALEATE
     Indication: PROPHYLAXIS
     Route: 048
     Dates: start: 20150526, end: 20151201
  7. SODIUM CHLORIDE. [Concomitant]
     Active Substance: SODIUM CHLORIDE
     Indication: BREAST CANCER
     Dosage: INDICATION: ISOTONIC SODIUM CHLORIDE SOLUTION
     Route: 042
     Dates: start: 20150526, end: 20151201
  8. SODIUM CHLORIDE. [Concomitant]
     Active Substance: SODIUM CHLORIDE
     Indication: BREAST CANCER
     Route: 042
     Dates: start: 20150901, end: 20151201
  9. ALOXI [Concomitant]
     Active Substance: PALONOSETRON HYDROCHLORIDE
     Indication: PROPHYLAXIS
     Route: 042
     Dates: start: 20150526, end: 20151201

REACTIONS (6)
  - Pericardial effusion [Recovered/Resolved]
  - Oedema peripheral [Recovering/Resolving]
  - Diarrhoea [Unknown]
  - Pleural effusion [Recovered/Resolved]
  - Malaise [Unknown]
  - Gastritis [Unknown]

NARRATIVE: CASE EVENT DATE: 20151110
